FAERS Safety Report 20653639 (Version 1)
Quarter: 2022Q1

REPORT INFORMATION
  Report Type: Spontaneous
  Country: US (occurrence: US)
  Receive Date: 20220330
  Receipt Date: 20220330
  Transmission Date: 20220423
  Serious: No
  Sender: FDA-Public Use
  Company Number: US-SA-SAC20220325000732

PATIENT
  Age: 61 Year
  Sex: Female

DRUGS (18)
  1. DUPIXENT [Suspect]
     Active Substance: DUPILUMAB
     Indication: Asthma
     Route: 058
     Dates: start: 20190614
  2. ALBUTEROL SULFATE [Concomitant]
     Active Substance: ALBUTEROL SULFATE
  3. BACLOFEN [Concomitant]
     Active Substance: BACLOFEN
  4. CHANTIX [Concomitant]
     Active Substance: VARENICLINE TARTRATE
  5. DULOXETINE [Concomitant]
     Active Substance: DULOXETINE
  6. GABAPENTIN [Concomitant]
     Active Substance: GABAPENTIN
  7. IMITREX [Concomitant]
     Active Substance: SUMATRIPTAN SUCCINATE
  8. LOSARTAN POTASSIUM [Concomitant]
     Active Substance: LOSARTAN POTASSIUM
  9. PANTOPRAZOLE [Concomitant]
     Active Substance: PANTOPRAZOLE
  10. PRAMIPEXOLE [Concomitant]
     Active Substance: PRAMIPEXOLE
  11. PREDNISONE [Concomitant]
     Active Substance: PREDNISONE
  12. REQUIP XL [Concomitant]
     Active Substance: ROPINIROLE HYDROCHLORIDE
  13. TEMAZEPAM [Concomitant]
     Active Substance: TEMAZEPAM
  14. TOLTERODINE [Concomitant]
     Active Substance: TOLTERODINE
  15. STIOLTO RESPIMAT [Concomitant]
     Active Substance: OLODATEROL HYDROCHLORIDE\TIOTROPIUM BROMIDE MONOHYDRATE
  16. CARVEDILOL [Concomitant]
     Active Substance: CARVEDILOL
  17. AMITRIPTYLINE [Concomitant]
     Active Substance: AMITRIPTYLINE
  18. ALBUTEROL [Concomitant]
     Active Substance: ALBUTEROL

REACTIONS (2)
  - Asthma [Not Recovered/Not Resolved]
  - Incorrect dose administered [Unknown]

NARRATIVE: CASE EVENT DATE: 20190614
